FAERS Safety Report 9366507 (Version 2)
Quarter: 2013Q3

REPORT INFORMATION
  Report Type: Report from Study
  Country: FR (occurrence: FR)
  Receive Date: 20130625
  Receipt Date: 20130704
  Transmission Date: 20140515
  Serious: Yes (Hospitalization)
  Sender: FDA-Public Use
  Company Number: FR-ROCHE-1235912

PATIENT
  Age: 58 Year
  Sex: Female
  Weight: 47 kg

DRUGS (1)
  1. TRASTUZUMAB EMTANSINE [Suspect]
     Indication: BREAST CANCER METASTATIC
     Dosage: THE LAST DOSE PRIOR TO THE EVENT WAS ON 16/MAY/2013.
     Route: 042
     Dates: start: 20130104

REACTIONS (2)
  - Acute pulmonary oedema [Recovered/Resolved]
  - Device related infection [Not Recovered/Not Resolved]
